FAERS Safety Report 6252209-2 (Version None)
Quarter: 2009Q2

REPORT INFORMATION
  Report Type: 
  Country: None (occurrence: None)
  Receive Date: 20090629
  Receipt Date: 20090225
  Transmission Date: 20091009
  Serious: Yes (Hospitalization, Disabling)
  Sender: FDA-Public Use
  Company Number: FR-GUERGET-20090047

PATIENT
  Age: 65 Year
  Sex: Male
  Weight: 90 kg

DRUGS (1)
  1. HEXABRIX [Suspect]
     Indication: SPINAL MYELOGRAM
     Dosage: 12, ML MILLILITRE (S) 1, 1, TOTAL INTRATHECAL
     Route: 037
     Dates: start: 20090224, end: 20090224

REACTIONS (6)
  - DRUG ADMINISTRATION ERROR [None]
  - FORMICATION [None]
  - OFF LABEL USE [None]
  - PARAESTHESIA [None]
  - PRURITUS [None]
  - SENSATION OF HEAVINESS [None]
